FAERS Safety Report 9455352 (Version 3)
Quarter: 2013Q4

REPORT INFORMATION
  Report Type: Spontaneous
  Country: CH (occurrence: None)
  Receive Date: 20130808
  Receipt Date: 20131001
  Transmission Date: 20140711
  Serious: Yes (Hospitalization)
  Sender: FDA-Public Use
  Company Number: 20130426

PATIENT
  Age: 34 Year
  Sex: Female
  Weight: 74.6 kg

DRUGS (3)
  1. FERINJECT [Suspect]
     Indication: IRON DEFICIENCY ANAEMIA
     Route: 041
     Dates: start: 20130610, end: 20130610
  2. GYNIPRAL (HEXOPRENALINE SULPHATE) [Concomitant]
  3. MAGNESIOCARD (MAGNESIUM ASPARTATE HYDROCHLORIDE) [Concomitant]

REACTIONS (6)
  - Premature labour [None]
  - Maternal exposure during pregnancy [None]
  - Uterine hypertonus [None]
  - Premature delivery [None]
  - Caesarean section [None]
  - Twin pregnancy [None]
